FAERS Safety Report 21228062 (Version 2)
Quarter: 2022Q3

REPORT INFORMATION
  Report Type: Spontaneous
  Country: US (occurrence: None)
  Receive Date: 20220818
  Receipt Date: 20220906
  Transmission Date: 20221027
  Serious: No
  Sender: FDA-Public Use
  Company Number: 2022A281452

PATIENT
  Sex: Female
  Weight: 50.3 kg

DRUGS (1)
  1. BUDESONIDE\FORMOTEROL\GLYCOPYRRONIUM [Suspect]
     Active Substance: BUDESONIDE\FORMOTEROL\GLYCOPYRRONIUM
     Indication: Chronic obstructive pulmonary disease
     Dosage: 160/5/7.2UG, TWO TIMES A DAY
     Route: 055

REACTIONS (5)
  - Cardiac discomfort [Unknown]
  - Wrong technique in product usage process [Unknown]
  - Device use issue [Unknown]
  - Incorrect dose administered [Unknown]
  - Drug delivery system issue [Unknown]
